FAERS Safety Report 12896700 (Version 3)
Quarter: 2017Q1

REPORT INFORMATION
  Report Type: Spontaneous
  Country: JP (occurrence: JP)
  Receive Date: 20161031
  Receipt Date: 20170206
  Transmission Date: 20170428
  Serious: Yes (Hospitalization, Other)
  Sender: FDA-Public Use
  Company Number: JP-GLAXOSMITHKLINE-JP2016JPN135626

PATIENT
  Age: 47 Year
  Sex: Male
  Weight: 76 kg

DRUGS (4)
  1. LIMAS [Concomitant]
     Active Substance: LITHIUM CARBONATE
     Dosage: UNK
     Dates: start: 20150414
  2. ROHYPNOL [Concomitant]
     Active Substance: FLUNITRAZEPAM
     Dosage: UNK
     Dates: start: 20150706
  3. LAMICTAL [Suspect]
     Active Substance: LAMOTRIGINE
     Indication: BIPOLAR I DISORDER
     Dosage: 25 MG, 1D
     Route: 048
     Dates: start: 20160719, end: 20160731
  4. LAMICTAL [Suspect]
     Active Substance: LAMOTRIGINE
     Indication: BIPOLAR DISORDER

REACTIONS (10)
  - Pyrexia [Recovered/Resolved]
  - Rash [Recovering/Resolving]
  - Seizure [Recovered/Resolved]
  - Lymphadenopathy [Recovering/Resolving]
  - Drug eruption [Recovered/Resolved]
  - Erythema [Not Recovered/Not Resolved]
  - Drug reaction with eosinophilia and systemic symptoms [Recovering/Resolving]
  - Rash papular [Recovering/Resolving]
  - Pruritus [Recovering/Resolving]
  - Carbuncle [Recovering/Resolving]

NARRATIVE: CASE EVENT DATE: 20160730
